FAERS Safety Report 14194727 (Version 1)
Quarter: 2017Q4

REPORT INFORMATION
  Report Type: Spontaneous
  Country: JP (occurrence: JP)
  Receive Date: 20171116
  Receipt Date: 20171116
  Transmission Date: 20180321
  Serious: Yes (Death, Other)
  Sender: FDA-Public Use
  Company Number: JP-ROCHE-1857762

PATIENT
  Age: 75 Year
  Sex: Female
  Weight: 44 kg

DRUGS (6)
  1. DOCETAXEL. [Concomitant]
     Active Substance: DOCETAXEL
     Dosage: DOSAGE IS UNCERTAIN.
     Route: 041
     Dates: start: 201505
  2. AVASTIN [Suspect]
     Active Substance: BEVACIZUMAB
     Route: 041
     Dates: start: 201501
  3. AVASTIN [Suspect]
     Active Substance: BEVACIZUMAB
     Route: 041
     Dates: start: 201505
  4. DOCETAXEL. [Concomitant]
     Active Substance: DOCETAXEL
     Indication: LUNG NEOPLASM MALIGNANT
     Route: 041
     Dates: start: 20140822
  5. AVASTIN [Suspect]
     Active Substance: BEVACIZUMAB
     Indication: LUNG NEOPLASM MALIGNANT
     Route: 041
     Dates: start: 20140822
  6. DOCETAXEL. [Concomitant]
     Active Substance: DOCETAXEL
     Dosage: DOSAGE IS UNCERTAIN.
     Route: 041
     Dates: start: 201501

REACTIONS (4)
  - Febrile neutropenia [Unknown]
  - Lung adenocarcinoma [Fatal]
  - Decreased appetite [Unknown]
  - Skin ulcer [Not Recovered/Not Resolved]
